FAERS Safety Report 4443541-3 (Version None)
Quarter: 2004Q3

REPORT INFORMATION
  Report Type: 
  Country: None (occurrence: None)
  Receive Date: 20040901
  Receipt Date: 20040817
  Transmission Date: 20050211
  Serious: Yes (Hospitalization)
  Sender: FDA-Public Use
  Company Number: 2002-04585

PATIENT
  Age: 37 Year
  Sex: Male

DRUGS (9)
  1. VIREAD [Suspect]
     Indication: HIV INFECTION
     Dosage: 300 MG, 1 IN 1 D, ORAL
     Route: 048
     Dates: start: 20020208, end: 20020517
  2. AMBISOME [Suspect]
     Indication: OESOPHAGEAL CANDIDIASIS
     Dosage: 3 MG/KG, 1 IN 1 D, INTRAVENOUS (NOT OTHERWISE SPECIFIED)
     Route: 042
     Dates: start: 20020515, end: 20020520
  3. BACTRIM [Suspect]
     Dates: end: 20020520
  4. ABACAVIR (ABACAVIR) [Concomitant]
  5. DIDANOSINE [Concomitant]
  6. CIPROFLOXACIN [Concomitant]
  7. CLARITHROMYCIN [Concomitant]
  8. GANCICLOVIR SODIUM [Concomitant]
  9. AMPHOTERICIN B [Concomitant]

REACTIONS (10)
  - BLOOD CREATININE INCREASED [None]
  - CREATININE RENAL CLEARANCE DECREASED [None]
  - DISEASE RECURRENCE [None]
  - DRUG INTERACTION [None]
  - GENERAL PHYSICAL HEALTH DETERIORATION [None]
  - HEPATITIS CHOLESTATIC [None]
  - HYPERCALCAEMIA [None]
  - LACTIC ACIDOSIS [None]
  - METABOLIC ACIDOSIS [None]
  - RENAL TUBULAR ACIDOSIS [None]
